FAERS Safety Report 14794279 (Version 1)
Quarter: 2018Q2

REPORT INFORMATION
  Report Type: Report from Study
  Country: US (occurrence: US)
  Receive Date: 20180423
  Receipt Date: 20180423
  Transmission Date: 20180711
  Serious: Yes (Other)
  Sender: FDA-Public Use
  Company Number: US-JNJFOC-20180310815

PATIENT
  Age: 63 Year
  Sex: Male

DRUGS (3)
  1. IMBRUVICA [Suspect]
     Active Substance: IBRUTINIB
     Indication: CHRONIC LYMPHOCYTIC LEUKAEMIA
     Route: 048
     Dates: start: 20180222
  2. SYNTHROID [Concomitant]
     Active Substance: LEVOTHYROXINE SODIUM
  3. MULTIVITAMINS [Concomitant]
     Active Substance: VITAMINS

REACTIONS (11)
  - Head discomfort [Unknown]
  - Nasopharyngitis [Unknown]
  - Enthesopathy [Not Recovered/Not Resolved]
  - Fatigue [Unknown]
  - Haemarthrosis [Not Recovered/Not Resolved]
  - Emotional distress [Unknown]
  - Abdominal discomfort [Recovered/Resolved]
  - Chills [Unknown]
  - Malaise [Unknown]
  - Pyrexia [Unknown]
  - Contusion [Unknown]

NARRATIVE: CASE EVENT DATE: 201802
